FAERS Safety Report 9085361 (Version 1)
Quarter: 2013Q1

REPORT INFORMATION
  Report Type: Report from Study
  Country: US (occurrence: US)
  Receive Date: 20130131
  Receipt Date: 20130131
  Transmission Date: 20140127
  Serious: Yes (Other)
  Sender: FDA-Public Use
  Company Number: US-US-EMD SERONO, INC.-7189725

PATIENT
  Sex: Female

DRUGS (1)
  1. REBIF [Suspect]
     Indication: PRODUCT USED FOR UNKNOWN INDICATION
     Route: 058
     Dates: start: 20080709, end: 20130109

REACTIONS (6)
  - Thyroid neoplasm [Unknown]
  - Vitamin D deficiency [Recovered/Resolved]
  - Blood calcium decreased [Recovered/Resolved]
  - Blood urea decreased [Recovered/Resolved]
  - Blood creatinine decreased [Recovered/Resolved]
  - Myalgia [Not Recovered/Not Resolved]
